FAERS Safety Report 21578725 (Version 2)
Quarter: 2023Q4

REPORT INFORMATION
  Report Type: Report from Study
  Country: US (occurrence: US)
  Receive Date: 20221110
  Receipt Date: 20231026
  Transmission Date: 20240110
  Serious: No
  Sender: FDA-Public Use
  Company Number: US-ABBVIE-4137872

PATIENT
  Sex: Female

DRUGS (2)
  1. HUMIRA [Suspect]
     Active Substance: ADALIMUMAB
     Indication: Crohn^s disease
     Dosage: CITRATE FREE FORM STRENGTH 40 MILLIGRAM
     Route: 058
     Dates: start: 202112
  2. PFIZER-BIONTECH COVID-19 VACCINE [Concomitant]
     Active Substance: TOZINAMERAN
     Indication: COVID-19 immunisation
     Dosage: TIME INTERVAL: TOTAL: 1 IN ONCE
     Route: 030

REACTIONS (4)
  - Faeces soft [Not Recovered/Not Resolved]
  - Crohn^s disease [Unknown]
  - Arthralgia [Unknown]
  - Therapeutic response shortened [Unknown]
